FAERS Safety Report 5669669-8 (Version None)
Quarter: 2008Q1

REPORT INFORMATION
  Report Type: 
  Country: None (occurrence: None)
  Receive Date: 20080317
  Receipt Date: 20080306
  Transmission Date: 20080703
  Serious: Yes (Hospitalization, Other)
  Sender: FDA-Public Use
  Company Number: CA-ROCHE-541678

PATIENT
  Age: 37 Year
  Sex: Male
  Weight: 84.2 kg

DRUGS (10)
  1. PEG-INTERFERON ALFA 2A (RO 25-8310) [Suspect]
     Dosage: DOSE UNBLINDED AFTER 12 WEEKS. DOSAGE FORM REPORTED AS VIALS.
     Route: 058
     Dates: start: 20070427, end: 20070810
  2. PEG-INTERFERON ALFA 2A (RO 25-8310) [Suspect]
     Dosage: DOSAGE FORM REPORTED AS: VIALS.
     Route: 058
     Dates: start: 20070817, end: 20080111
  3. RIBAVIRIN [Suspect]
     Dosage: DOSE BLINDED.
     Route: 048
     Dates: start: 20070427, end: 20070806
  4. RIBAVIRIN [Suspect]
     Route: 048
     Dates: start: 20070814, end: 20080109
  5. HALCION [Concomitant]
     Dates: start: 19970101
  6. ASCORBIC ACID [Concomitant]
     Dates: start: 19950101
  7. MULTI-VITAMIN [Concomitant]
     Dates: start: 19950101
  8. VENLAFAXINE HCL [Concomitant]
     Dates: start: 20070710
  9. PERCOCET [Concomitant]
     Dates: start: 20070813
  10. OXYCONTIN [Concomitant]
     Dates: start: 20071215

REACTIONS (3)
  - OVERDOSE [None]
  - RENAL FAILURE [None]
  - SUICIDE ATTEMPT [None]
